FAERS Safety Report 17465091 (Version 2)
Quarter: 2020Q1

REPORT INFORMATION
  Report Type: Spontaneous
  Country: US (occurrence: US)
  Receive Date: 20200227
  Receipt Date: 20200309
  Transmission Date: 20200409
  Serious: Yes (Other)
  Sender: FDA-Public Use
  Company Number: US-009507513-2002USA009156

PATIENT
  Age: 66 Year
  Sex: Female

DRUGS (4)
  1. DIFICID [Suspect]
     Active Substance: FIDAXOMICIN
     Dosage: 1 TABLET, BID (ONE TABLET IN THE MORNING AND ONE TABLET IN THE EVENING FOR 10 DAYS)
     Route: 048
     Dates: start: 201911, end: 201911
  2. DIFICID [Suspect]
     Active Substance: FIDAXOMICIN
     Indication: CLOSTRIDIUM DIFFICILE INFECTION
     Dosage: 1 TABLET, BID (ONE TABLET IN THE MORNING AND ONE TABLET IN THE EVENING FOR 10 DAYS), BY MOUTH
     Route: 048
     Dates: start: 201811, end: 201811
  3. DIFICID [Suspect]
     Active Substance: FIDAXOMICIN
     Dosage: 1 TABLET, BID (ONE TABLET IN THE MORNING AND ONE TABLET IN THE EVENING FOR 10 DAYS)
     Route: 048
     Dates: start: 20200207, end: 20200217
  4. HYDROCHLORTHIAZID [Concomitant]
     Active Substance: HYDROCHLOROTHIAZIDE
     Dosage: UNK

REACTIONS (9)
  - Clostridium difficile infection [Recovered/Resolved]
  - Nausea [Not Recovered/Not Resolved]
  - Clostridium difficile infection [Not Recovered/Not Resolved]
  - Perineal operation [Unknown]
  - Gastroenteritis viral [Not Recovered/Not Resolved]
  - Diarrhoea [Not Recovered/Not Resolved]
  - Insomnia [Not Recovered/Not Resolved]
  - Feeding disorder [Not Recovered/Not Resolved]
  - Rectocele [Unknown]

NARRATIVE: CASE EVENT DATE: 2019
